FAERS Safety Report 12653646 (Version 1)
Quarter: 2016Q3

REPORT INFORMATION
  Report Type: Spontaneous
  Country: US (occurrence: US)
  Receive Date: 20160815
  Receipt Date: 20160815
  Transmission Date: 20161109
  Serious: No
  Sender: FDA-Public Use
  Company Number: US-ASTRAZENECA-2016SE62456

PATIENT
  Age: 75 Year
  Sex: Female
  Weight: 77.1 kg

DRUGS (13)
  1. OMEPRAZOLE. [Suspect]
     Active Substance: OMEPRAZOLE
     Route: 048
     Dates: start: 2015
  2. LACTULOSE. [Concomitant]
     Active Substance: LACTULOSE
  3. SPIRONOLACTONE. [Suspect]
     Active Substance: SPIRONOLACTONE
     Indication: LIVER DISORDER
     Route: 048
     Dates: start: 2015
  4. QUETIAPINE FUMARATE. [Suspect]
     Active Substance: QUETIAPINE FUMARATE
     Indication: SLEEP DISORDER
     Route: 048
     Dates: start: 2015
  5. UNSPECIFIED DRUG [Suspect]
     Active Substance: UNSPECIFIED INGREDIENT
     Indication: NEURALGIA
     Dosage: 25MG TABLET ONE IN MORNING AND ONE IN EVENING
     Route: 048
     Dates: start: 2015
  6. METOPROLOL SUCCINATE. [Suspect]
     Active Substance: METOPROLOL SUCCINATE
     Route: 048
  7. MECLIZINE HCL [Concomitant]
     Active Substance: MECLIZINE HYDROCHLORIDE
  8. PRISTIQ EXTENDED-RELEASE [Suspect]
     Active Substance: DESVENLAFAXINE SUCCINATE
     Indication: NEURALGIA
     Route: 048
     Dates: start: 2015
  9. BYETTA [Concomitant]
     Active Substance: EXENATIDE
  10. LYRICA [Suspect]
     Active Substance: PREGABALIN
     Indication: PAIN IN EXTREMITY
     Dosage: 100MG CAPSULE ONE IN MORNING AND ONE IN EVENING
     Route: 048
  11. FUROSEMIDE. [Concomitant]
     Active Substance: FUROSEMIDE
     Indication: DIURETIC THERAPY
  12. LANCTUS [Concomitant]
  13. HUMALOG [Concomitant]
     Active Substance: INSULIN LISPRO

REACTIONS (5)
  - Drug administration error [Not Recovered/Not Resolved]
  - Product use issue [Unknown]
  - Off label use [Unknown]
  - Amnesia [Not Recovered/Not Resolved]
  - Mental disorder [Unknown]

NARRATIVE: CASE EVENT DATE: 2015
